FAERS Safety Report 15298935 (Version 1)
Quarter: 2018Q3

REPORT INFORMATION
  Report Type: Report from Study
  Country: DE (occurrence: DE)
  Receive Date: 20180821
  Receipt Date: 20180821
  Transmission Date: 20181010
  Serious: Yes (Other)
  Sender: FDA-Public Use
  Company Number: DE-TEVA-2018-DE-944301

PATIENT
  Age: 74 Year
  Sex: Female
  Weight: 60 kg

DRUGS (21)
  1. PACLITAXEL. [Suspect]
     Active Substance: PACLITAXEL
     Indication: BREAST CANCER METASTATIC
     Route: 042
     Dates: start: 20100408
  2. BEVACIZUMAB. [Suspect]
     Active Substance: BEVACIZUMAB
     Indication: BREAST CANCER METASTATIC
     Dosage: ON DAYS 1, 15 AND 29
     Route: 042
     Dates: start: 20100408, end: 20100506
  3. BEVACIZUMAB. [Suspect]
     Active Substance: BEVACIZUMAB
     Route: 042
     Dates: start: 20100506, end: 20100506
  4. GRANISETRON [Concomitant]
     Active Substance: GRANISETRON
     Indication: PROPHYLAXIS
     Dosage: ON DAY 1
     Route: 042
     Dates: start: 20100408, end: 20100506
  5. METOPROLOL. [Concomitant]
     Active Substance: METOPROLOL
     Route: 065
     Dates: start: 20050301
  6. DIMETINDENE [Concomitant]
     Active Substance: DIMETHINDENE
     Indication: PROPHYLAXIS
     Dosage: ON DAY 1
     Route: 042
     Dates: start: 20100408, end: 20100506
  7. PACLITAXEL. [Suspect]
     Active Substance: PACLITAXEL
     Route: 042
     Dates: start: 20030415
  8. PACLITAXEL. [Suspect]
     Active Substance: PACLITAXEL
     Route: 042
     Dates: start: 20100415
  9. CLEXANE [Concomitant]
     Active Substance: ENOXAPARIN SODIUM
     Dosage: LONG TERM THERAPY
     Route: 058
  10. TROMCARDIN [Concomitant]
     Active Substance: MAGNESIUM ASPARTATE\POTASSIUM ASPARTATE
     Dosage: LONG TERM THERAPY
     Route: 048
  11. ZINKOROTAT [Concomitant]
     Active Substance: ZINC OROTATE
     Dosage: 1 DOSAGE FORMS DAILY; LON TERM THERAPY
     Route: 048
  12. PACLITAXEL. [Suspect]
     Active Substance: PACLITAXEL
     Route: 042
     Dates: start: 20030422
  13. BEVACIZUMAB. [Suspect]
     Active Substance: BEVACIZUMAB
     Dosage: FREQUENCY :1,15
     Route: 042
     Dates: start: 20030408, end: 20030408
  14. L?THYROXIN [Concomitant]
     Active Substance: LEVOTHYROXINE SODIUM
     Indication: HYPERTHYROIDISM
     Dosage: 50 MICROGRAM DAILY; LONG TERM THERAPY
     Route: 048
  15. PACLITAXEL. [Suspect]
     Active Substance: PACLITAXEL
     Route: 042
     Dates: start: 20100506
  16. CEFASEL [Concomitant]
     Dosage: 1 DOSAGE FORMS DAILY; LONG TERM THERAPY
     Route: 048
  17. RANITIDIN [Concomitant]
     Active Substance: RANITIDINE HYDROCHLORIDE
     Indication: PROPHYLAXIS
     Dosage: ON DAY 1
     Route: 042
     Dates: start: 20100408, end: 20100506
  18. DEXAMETHASONE. [Concomitant]
     Active Substance: DEXAMETHASONE
     Indication: PROPHYLAXIS
     Dosage: DAY 1 AND 2
     Route: 048
     Dates: start: 20100408, end: 20100516
  19. NOVODIGAL [Concomitant]
     Dosage: .2 MILLIGRAM DAILY; LONG TERM THERAPY
     Route: 048
  20. CRATAEGUTT [Concomitant]
     Dosage: 1 DOSAGE FORMS DAILY; LONG TERM THERAPY
     Route: 048
  21. PACLITAXEL. [Suspect]
     Active Substance: PACLITAXEL
     Route: 042
     Dates: start: 20100422

REACTIONS (2)
  - Cardiac failure [Not Recovered/Not Resolved]
  - Toxic skin eruption [Recovered/Resolved]

NARRATIVE: CASE EVENT DATE: 20100506
